FAERS Safety Report 24531298 (Version 2)
Quarter: 2024Q4

REPORT INFORMATION
  Report Type: Spontaneous
  Country: CA (occurrence: CA)
  Receive Date: 20241022
  Receipt Date: 20241204
  Transmission Date: 20250115
  Serious: Yes (Other)
  Sender: SANOFI AVENTIS
  Company Number: CA-SA-2024SA300678

PATIENT
  Age: 2 Year
  Sex: Male
  Weight: 13 kg

DRUGS (4)
  1. ALPROLIX [Suspect]
     Active Substance: EFTRENONACOG ALFA
     Indication: Factor IX deficiency
     Dosage: 1000 IU, 1X
     Route: 042
     Dates: start: 2024, end: 2024
  2. ALPROLIX [Suspect]
     Active Substance: EFTRENONACOG ALFA
     Indication: Factor IX deficiency
     Dosage: 1000 IU, 1X
     Route: 042
     Dates: start: 2024, end: 2024
  3. ALPROLIX [Suspect]
     Active Substance: EFTRENONACOG ALFA
     Dosage: 500 IU, 1X
     Route: 042
     Dates: start: 2024
  4. ALPROLIX [Suspect]
     Active Substance: EFTRENONACOG ALFA
     Dosage: 500 IU, 1X
     Route: 042
     Dates: start: 2024

REACTIONS (14)
  - Blood pressure immeasurable [Recovered/Resolved]
  - Crying [Recovered/Resolved]
  - Transfusion reaction [Recovered/Resolved]
  - Urticaria [Recovered/Resolved]
  - Hypersensitivity [Recovered/Resolved]
  - Rash papular [Recovered/Resolved]
  - Pallor [Recovered/Resolved]
  - Oedema peripheral [Recovered/Resolved]
  - Productive cough [Recovered/Resolved]
  - Papule [Recovered/Resolved]
  - Face oedema [Recovered/Resolved]
  - Cough [Recovered/Resolved]
  - Vomiting projectile [Recovered/Resolved]
  - Abdominal pain [Recovered/Resolved]

NARRATIVE: CASE EVENT DATE: 20240515
